FAERS Safety Report 4317298-0 (Version None)
Quarter: 2004Q1

REPORT INFORMATION
  Report Type: 
  Country: None (occurrence: None)
  Receive Date: 20040305
  Receipt Date: 20040217
  Transmission Date: 20041129
  Serious: No
  Sender: FDA-Public Use
  Company Number: CART-10139

PATIENT
  Age: 17 Year
  Sex: Female
  Weight: 61.2356 kg

DRUGS (1)
  1. CARTICEL [Suspect]
     Indication: BONE DISORDER
     Dosage: 1 NA ONCE IS
     Dates: start: 20010604, end: 20010604

REACTIONS (3)
  - ARTHRALGIA [None]
  - GRAFT COMPLICATION [None]
  - GRAFT OVERGROWTH [None]
